FAERS Safety Report 4899032-9 (Version None)
Quarter: 2006Q1

REPORT INFORMATION
  Report Type: 
  Country: None (occurrence: None)
  Receive Date: 20060124
  Receipt Date: 20060111
  Transmission Date: 20060701
  Serious: Yes (Hospitalization, Other)
  Sender: FDA-Public Use
  Company Number: 2006AL000049

PATIENT
  Age: 10 Year
  Sex: Female
  Weight: 28.8 kg

DRUGS (1)
  1. CARBAMAZEPINE [Suspect]
     Indication: CONVULSION
     Dosage: 100 MG; BID; PO
     Route: 048

REACTIONS (44)
  - ABDOMINAL TENDERNESS [None]
  - ACIDOSIS [None]
  - ACUTE RESPIRATORY FAILURE [None]
  - ANAEMIA [None]
  - BLOOD CULTURE POSITIVE [None]
  - CANDIDIASIS [None]
  - CARDIAC FAILURE [None]
  - CORNEAL DISORDER [None]
  - DILATATION ATRIAL [None]
  - DILATATION VENTRICULAR [None]
  - DYSURIA [None]
  - GASTROINTESTINAL HAEMORRHAGE [None]
  - GENITAL HAEMORRHAGE [None]
  - HAEMORRHAGE URINARY TRACT [None]
  - HEART RATE INCREASED [None]
  - HYPERSENSITIVITY [None]
  - HYPOTENSION [None]
  - HYPOXIA [None]
  - ILEUS [None]
  - IMPAIRED GASTRIC EMPTYING [None]
  - INCREASED BRONCHIAL SECRETION [None]
  - LUNG CONSOLIDATION [None]
  - LUNG DISORDER [None]
  - MULTI-ORGAN FAILURE [None]
  - NEUTROPENIA [None]
  - OEDEMA [None]
  - ONYCHOMADESIS [None]
  - PETECHIAE [None]
  - PHOTOPHOBIA [None]
  - PIGMENTATION DISORDER [None]
  - PLEURAL EFFUSION [None]
  - PULMONARY HYPERTENSION [None]
  - PULMONARY OEDEMA [None]
  - RESPIRATORY RATE INCREASED [None]
  - SEDATION [None]
  - SEPSIS [None]
  - SKIN GRAFT [None]
  - STAPHYLOCOCCAL INFECTION [None]
  - STENOTROPHOMONAS INFECTION [None]
  - SWOLLEN TONGUE [None]
  - THROMBOCYTOPENIA [None]
  - TOXIC EPIDERMAL NECROLYSIS [None]
  - URINE ABNORMALITY [None]
  - URINE OUTPUT DECREASED [None]
